FAERS Safety Report 6805722-0 (Version None)
Quarter: 2010Q2

REPORT INFORMATION
  Report Type: 
  Country: None (occurrence: None)
  Receive Date: 20100628
  Receipt Date: 20080916
  Transmission Date: 20101027
  Serious: Yes (Other)
  Sender: FDA-Public Use
  Company Number: US-PFIZER INC-2008063558

PATIENT
  Sex: Male
  Weight: 54.1 kg

DRUGS (4)
  1. SUTENT [Suspect]
     Indication: RENAL CELL CARCINOMA
     Route: 048
     Dates: start: 20080125
  2. METOPROLOL [Concomitant]
  3. PRAVASTATIN [Concomitant]
  4. AMLODIPINE [Concomitant]

REACTIONS (3)
  - BRADYCARDIA [None]
  - LEUKOPENIA [None]
  - SYNCOPE [None]
